FAERS Safety Report 6118826-5 (Version None)
Quarter: 2009Q1

REPORT INFORMATION
  Report Type: 
  Country: None (occurrence: None)
  Receive Date: 20090316
  Receipt Date: 20090309
  Transmission Date: 20090719
  Serious: Yes (Hospitalization)
  Sender: FDA-Public Use
  Company Number: FR-BRISTOL-MYERS SQUIBB COMPANY-14540371

PATIENT
  Age: 88 Year
  Sex: Female

DRUGS (7)
  1. GLUCOPHAGE [Suspect]
     Indication: TYPE 2 DIABETES MELLITUS
     Dosage: STOPPED ON 20DEC08 RESTARTED ON 5JAN09 TO  16JAN09 ( 11 DAYS) FILM COATED TABLET
     Route: 048
     Dates: end: 20081220
  2. NOROXIN [Suspect]
     Indication: CYSTITIS
     Dosage: FILM COATED TABLET
     Route: 048
     Dates: start: 20081209, end: 20081216
  3. AMARYL [Suspect]
     Indication: TYPE 2 DIABETES MELLITUS
     Dosage: STOPPED ON 20DEC08 RESTARTED ON 10JAN09 TO 12JAN09 (2 DAYS) TABLET FORMULATION
     Route: 048
     Dates: end: 20081220
  4. ALLOPURINOL [Suspect]
     Indication: GOUT
     Route: 048
     Dates: start: 20081206, end: 20081217
  5. LASIX [Concomitant]
     Indication: HYPERTENSION
     Dosage: TABLET FORMULATION
     Route: 048
  6. MEDIATENSYL [Concomitant]
     Indication: HYPERTENSION
     Dosage: CAPSULE FORMULATION
     Route: 048
  7. DIFFU-K [Concomitant]
     Indication: MINERAL SUPPLEMENTATION
     Dosage: CAPSULE FORMULATION
     Route: 048

REACTIONS (3)
  - GINGIVAL BLEEDING [None]
  - PURPURA [None]
  - THROMBOCYTOPENIA [None]
